FAERS Safety Report 5643082-1 (Version None)
Quarter: 2008Q1

REPORT INFORMATION
  Report Type: 
  Country: None (occurrence: None)
  Receive Date: 20080227
  Receipt Date: 20080227
  Transmission Date: 20080703
  Serious: No
  Sender: FDA-Public Use
  Company Number: None

PATIENT
  Age: 26 Year
  Sex: Male
  Weight: 85.28 kg

DRUGS (1)
  1. TRAMADOL HCL [Suspect]
     Dosage: 50MG PRN PO
     Route: 048
     Dates: start: 20070711, end: 20070713

REACTIONS (3)
  - PRURITUS [None]
  - RASH [None]
  - URTICARIA [None]
